FAERS Safety Report 19181495 (Version 3)
Quarter: 2021Q2

REPORT INFORMATION
  Report Type: Report from Study
  Country: BR (occurrence: BR)
  Receive Date: 20210426
  Receipt Date: 20210621
  Transmission Date: 20210717
  Serious: Yes (Other)
  Sender: FDA-Public Use
  Company Number: NVSC2021BR092751

PATIENT
  Age: 42 Year
  Sex: Female
  Weight: 68 kg

DRUGS (4)
  1. KISQALI [Suspect]
     Active Substance: RIBOCICLIB
     Dosage: 2 DF (21 DAYS AND 7 DAY PAUSE)
     Route: 048
     Dates: start: 202101
  2. LETROZOL [Suspect]
     Active Substance: LETROZOLE
     Indication: HORMONE THERAPY
     Dosage: 1 DF(1 TABLET), QD
     Route: 048
     Dates: start: 20201223
  3. KISQALI [Suspect]
     Active Substance: RIBOCICLIB
     Indication: BREAST CANCER
     Dosage: 2 DF (2 TABLETS), QD
     Route: 048
     Dates: start: 20201223
  4. LETROZOL [Suspect]
     Active Substance: LETROZOLE
     Indication: AROMATASE INHIBITION THERAPY
     Dosage: UNK
     Route: 048

REACTIONS (4)
  - Alopecia [Recovering/Resolving]
  - Drug interaction [Unknown]
  - Neutropenia [Recovered/Resolved]
  - Neutrophil count decreased [Recovering/Resolving]

NARRATIVE: CASE EVENT DATE: 202101
